FAERS Safety Report 4617900-X (Version None)
Quarter: 2005Q1

REPORT INFORMATION
  Report Type: 
  Country: None (occurrence: None)
  Receive Date: 20050322
  Receipt Date: 20050315
  Transmission Date: 20050727
  Serious: Yes (Hospitalization, Other)
  Sender: FDA-Public Use
  Company Number: SEWYE503515MAR05

PATIENT
  Age: 53 Year
  Sex: Female

DRUGS (3)
  1. CYCLOSPORINE [Suspect]
     Indication: RENAL TRANSPLANT
     Dosage: 275 MF 2X PER 1 DAY ORAL
     Route: 048
     Dates: start: 20041229, end: 20050101
  2. CYCLOSPORINE [Suspect]
     Indication: RENAL TRANSPLANT
     Dosage: 275 MF 2X PER 1 DAY ORAL
     Route: 048
     Dates: start: 20050101
  3. . [Concomitant]

REACTIONS (4)
  - GRAFT COMPLICATION [None]
  - LYMPHOCELE [None]
  - RENAL IMPAIRMENT [None]
  - URETERAL DISORDER [None]
